FAERS Safety Report 7169986-9 (Version None)
Quarter: 2010Q4

REPORT INFORMATION
  Report Type: 
  Country: None (occurrence: None)
  Receive Date: 20101206
  Receipt Date: 20101124
  Transmission Date: 20110411
  Serious: Yes (Hospitalization)
  Sender: FDA-Public Use
  Company Number: 1000017494

PATIENT
  Age: 63 Year
  Sex: Male

DRUGS (11)
  1. NEBIVOLOL (NEBIVOLOL HYDROCHLORIDE) [Suspect]
     Dosage: 5 MG (5 MG, 1 IN 1 D), ORAL
     Route: 048
     Dates: start: 20100101, end: 20101012
  2. ADENURIC (FEBUXOSTAT) [Suspect]
     Indication: GOUT
     Dosage: 120 MG (120 MG, 1 IN 1 D), ORAL
     Route: 048
     Dates: start: 20100801, end: 20101001
  3. VIDAZA [Suspect]
     Indication: ACUTE MYELOID LEUKAEMIA
     Dosage: INTRAVENOUS (NOT OTHERWISE SPECIFIED)
     Route: 042
     Dates: start: 20081119, end: 20100921
  4. COLCHIMAX (COLCHICINE, OPIUM POWDER, TIEMONIUM METHYL SULPHATE) [Suspect]
     Indication: GOUT
     Dosage: ORAL
     Route: 048
     Dates: start: 20100713, end: 20101001
  5. COKENZEN (CANDESARTAN CILEXETIL, HYDROCHLOROTHIAZIDE) [Concomitant]
  6. FENOFIBRATE [Concomitant]
  7. OMEPRAZOLE [Concomitant]
  8. METFORMIN HCL [Concomitant]
  9. FOLIC ACID [Concomitant]
  10. DISULONE (DAPSONE, FERROUS OXALATE) [Concomitant]
  11. SPORANOX [Concomitant]

REACTIONS (8)
  - ACUTE PRERENAL FAILURE [None]
  - DIARRHOEA [None]
  - GENERAL PHYSICAL HEALTH DETERIORATION [None]
  - HYPOXIA [None]
  - MULTIPLE-DRUG RESISTANCE [None]
  - OBLITERATIVE BRONCHIOLITIS [None]
  - ORGANISING PNEUMONIA [None]
  - STENOTROPHOMONAS INFECTION [None]
